FAERS Safety Report 7821069-8 (Version None)
Quarter: 2011Q4

REPORT INFORMATION
  Report Type: 
  Country: None (occurrence: None)
  Receive Date: 20111018
  Receipt Date: 20111014
  Transmission Date: 20120403
  Serious: Yes (Hospitalization)
  Sender: FDA-Public Use
  Company Number: US-BRISTOL-MYERS SQUIBB COMPANY-14085625

PATIENT
  Age: 65 Year
  Sex: Male
  Weight: 72 kg

DRUGS (1)
  1. CISPLATIN [Suspect]
     Indication: HEAD AND NECK CANCER
     Dosage: 1ST COURSE 08JAN08
     Dates: start: 20080129, end: 20080129

REACTIONS (5)
  - CHILLS [None]
  - DEHYDRATION [None]
  - FEBRILE NEUTROPENIA [None]
  - PAIN [None]
  - STOMATITIS [None]
